FAERS Safety Report 18869862 (Version 4)
Quarter: 2021Q4

REPORT INFORMATION
  Report Type: Other
  Country: CA (occurrence: None)
  Receive Date: 20210209
  Receipt Date: 20211124
  Transmission Date: 20220303
  Serious: Yes (Hospitalization)
  Sender: FDA-Public Use
  Company Number: CA-ROCHE-2759625

PATIENT
  Sex: Male
  Weight: 78.2 kg

DRUGS (12)
  1. TECENTRIQ [Suspect]
     Active Substance: ATEZOLIZUMAB
     Indication: Hepatocellular carcinoma
     Dosage: 1200 MG EVERY THREE WEEKS
     Route: 042
     Dates: start: 20210108
  2. TECENTRIQ [Suspect]
     Active Substance: ATEZOLIZUMAB
     Dosage: STARTED ON 21/APR/2021 (START TIME:13:35; STOP TIME: 14:05) (INFUSION CYCLE: 6)?NEXT INFUSION PLANNE
     Route: 042
  3. AVASTIN [Suspect]
     Active Substance: BEVACIZUMAB
     Indication: Hepatocellular carcinoma
     Route: 065
     Dates: start: 20210108
  4. AVASTIN [Suspect]
     Active Substance: BEVACIZUMAB
     Dosage: STARTED ON 21/APR/2021 (START TIME:14:35; STOP TIME: 15:05) (INFUSION CYCLE: 6),
     Route: 042
  5. ELLIPTA INHALER (UNK INGREDIENTS) [Concomitant]
  6. NADOLOL [Concomitant]
     Active Substance: NADOLOL
  7. ZOPICLONE [Concomitant]
     Active Substance: ZOPICLONE
     Dosage: AS NEEDED HALF TABLET
  8. PANTOPRAZOLE SODIUM [Concomitant]
     Active Substance: PANTOPRAZOLE SODIUM
  9. METRONIDAZOLE [Concomitant]
     Active Substance: METRONIDAZOLE
  10. QUETIAPINE [Concomitant]
     Active Substance: QUETIAPINE
  11. VITAMIN B1 [Concomitant]
     Active Substance: THIAMINE HYDROCHLORIDE
  12. ALBUTEROL [Concomitant]
     Active Substance: ALBUTEROL
     Dosage: AS NEEDED

REACTIONS (8)
  - Dyspnoea [Recovered/Resolved]
  - Insomnia [Recovering/Resolving]
  - Eating disorder [Recovering/Resolving]
  - Dehydration [Recovered/Resolved]
  - Fatigue [Unknown]
  - Sinus disorder [Unknown]
  - Haemoptysis [Recovering/Resolving]
  - Epistaxis [Unknown]
